FAERS Safety Report 5153421-6 (Version None)
Quarter: 2006Q4

REPORT INFORMATION
  Report Type: 
  Country: None (occurrence: None)
  Receive Date: 20061110
  Receipt Date: 20061109
  Transmission Date: 20070319
  Serious: Yes (Death)
  Sender: FDA-Public Use
  Company Number: 2006-150140-NL

PATIENT
  Age: 50 Year
  Sex: Female

DRUGS (2)
  1. MIRTAZAPINE [Suspect]
     Indication: DEPRESSION
     Dosage: 15 MG
     Route: 048
     Dates: end: 20061003
  2. CHEMOTHERAPY [Concomitant]

REACTIONS (3)
  - AGRANULOCYTOSIS [None]
  - LEUKOPENIA [None]
  - THROMBOCYTOPENIA [None]
